FAERS Safety Report 23815395 (Version 2)
Quarter: 2024Q3

REPORT INFORMATION
  Report Type: Report from Study
  Country: US (occurrence: US)
  Receive Date: 20240503
  Receipt Date: 20240701
  Transmission Date: 20241017
  Serious: Yes (Other)
  Sender: ABBVIE
  Company Number: US-ABBVIE-5742737

PATIENT
  Age: 51 Year
  Sex: Female

DRUGS (1)
  1. SKYRIZI [Suspect]
     Active Substance: RISANKIZUMAB-RZAA
     Indication: Crohn^s disease
     Route: 058
     Dates: start: 20230927

REACTIONS (8)
  - Neoplasm malignant [Recovered/Resolved]
  - Dyschezia [Recovered/Resolved]
  - Gastrointestinal inflammation [Recovered/Resolved]
  - Stoma creation [Unknown]
  - Therapeutic response shortened [Unknown]
  - Dyschezia [Not Recovered/Not Resolved]
  - Drug ineffective [Unknown]
  - Gastrointestinal inflammation [Not Recovered/Not Resolved]

NARRATIVE: CASE EVENT DATE: 20240201
